FAERS Safety Report 9154368 (Version 2)
Quarter: 2013Q1

REPORT INFORMATION
  Report Type: Spontaneous
  Country: TR (occurrence: TR)
  Receive Date: 20130311
  Receipt Date: 20130319
  Transmission Date: 20140127
  Serious: Yes (Other)
  Sender: FDA-Public Use
  Company Number: TR-PFIZER INC-2013078899

PATIENT
  Age: 86 Year
  Sex: Male

DRUGS (1)
  1. TYGACIL [Suspect]
     Dosage: UNK

REACTIONS (2)
  - Cerebrovascular accident [Unknown]
  - Gastric cancer [Unknown]
